FAERS Safety Report 5025519-4 (Version None)
Quarter: 2006Q2

REPORT INFORMATION
  Report Type: 
  Country: None (occurrence: None)
  Receive Date: 20060607
  Receipt Date: 20060522
  Transmission Date: 20061013
  Serious: Yes (Death)
  Sender: FDA-Public Use
  Company Number: DSA_70908_2006

PATIENT
  Age: 27 Year
  Sex: Male

DRUGS (2)
  1. METHADONE HCL [Suspect]
     Indication: ACCIDENT AT WORK
     Dosage: DF
  2. VENLAFAXINE HCL [Suspect]
     Dosage: DF

REACTIONS (5)
  - DIABETIC KETOACIDOSIS [None]
  - FOREIGN BODY TRAUMA [None]
  - NEPHROPATHY [None]
  - THERAPEUTIC AGENT TOXICITY [None]
  - TREATMENT NONCOMPLIANCE [None]
